FAERS Safety Report 8567557 (Version 3)
Quarter: 2012Q4

REPORT INFORMATION
  Report Type: 
  Country: US (occurrence: US)
  Receive Date: 20120517
  Receipt Date: 20120907
  Transmission Date: 20130627
  Serious: Yes (Other)
  Sender: FDA-Public Use
  Company Number: US-TEVA-338040USA

PATIENT
  Age: 60 Year
  Sex: Female

DRUGS (9)
  1. COPAXONE [Suspect]
     Indication: MULTIPLE SCLEROSIS
     Route: 058
     Dates: start: 2012
  2. PREMARIN [Concomitant]
  3. CLONIDINE [Concomitant]
  4. LASIX [Concomitant]
  5. LISINOPRIL [Concomitant]
  6. POTASSIUM [Concomitant]
  7. OXYCODONE [Concomitant]
     Indication: ANALGESIC THERAPY
  8. VALIUM [Concomitant]
  9. TIZANIDINE HYDROCHLORIDE [Concomitant]

REACTIONS (1)
  - Anaphylactic shock [Recovered/Resolved]
